FAERS Safety Report 5750363-X (Version None)
Quarter: 2008Q2

REPORT INFORMATION
  Report Type: 
  Country: None (occurrence: None)
  Receive Date: 20080523
  Receipt Date: 20080523
  Transmission Date: 20081010
  Serious: Yes (Hospitalization)
  Sender: FDA-Public Use
  Company Number: None

PATIENT
  Sex: Female
  Weight: 86.1834 kg

DRUGS (1)
  1. IMATINIB MESYLATE  400MG  NOVARTIS [Suspect]
     Indication: ACUTE MYELOID LEUKAEMIA
     Dosage: 400MG BID PO
     Route: 048
     Dates: start: 20080228, end: 20080312

REACTIONS (1)
  - FEBRILE NEUTROPENIA [None]
